FAERS Safety Report 6747153-8 (Version None)
Quarter: 2010Q2

REPORT INFORMATION
  Report Type: 
  Country: None (occurrence: None)
  Receive Date: 20100528
  Receipt Date: 20100519
  Transmission Date: 20101027
  Serious: Yes (Other)
  Sender: FDA-Public Use
  Company Number: US-PFIZER INC-2010019672

PATIENT
  Sex: Female
  Weight: 81.6 kg

DRUGS (14)
  1. TOVIAZ [Suspect]
     Indication: INCONTINENCE
     Dosage: 8 MG, 1X/DAY
     Dates: start: 20091104
  2. PREDNISONE [Suspect]
     Dosage: UNK
  3. ZINECARD [Concomitant]
     Dosage: UNK
  4. ADDERALL 30 [Concomitant]
     Dosage: UNK
  5. ALPRAZOLAM [Concomitant]
     Dosage: UNK
  6. LEVOTHYROXINE [Concomitant]
     Dosage: UNK
  7. BENICAR [Concomitant]
     Dosage: UNK
  8. COREG [Concomitant]
     Dosage: UNK
  9. PROZAC [Concomitant]
     Dosage: UNK
  10. AMBIEN [Concomitant]
     Dosage: UNK
  11. HYDROCODONE [Concomitant]
     Dosage: UNK
  12. ACETYLSALICYLIC ACID [Concomitant]
     Dosage: UNK
  13. ADVIL LIQUI-GELS [Concomitant]
     Dosage: UNK
  14. ALEVE (CAPLET) [Concomitant]
     Dosage: UNK

REACTIONS (12)
  - ALOPECIA [None]
  - ARTHROPATHY [None]
  - CONSTIPATION [None]
  - DYSPEPSIA [None]
  - DYSPNOEA [None]
  - EYE DISORDER [None]
  - FLATULENCE [None]
  - OEDEMA [None]
  - SKIN LACERATION [None]
  - SWELLING FACE [None]
  - VISUAL ACUITY REDUCED [None]
  - WOUND HAEMORRHAGE [None]
